FAERS Safety Report 9227495 (Version 1)
Quarter: 2013Q1

REPORT INFORMATION
  Report Type: Spontaneous
  Country: US (occurrence: None)
  Receive Date: 20121004
  Receipt Date: 20121004
  Transmission Date: 20140127
  Serious: Yes (Other)
  Sender: FDA-Public Use
  Company Number: PHEH2012US013519

PATIENT
  Age: 53 Year
  Sex: Female

DRUGS (7)
  1. COMBIPATCH [Suspect]
     Route: 062
     Dates: start: 201202
  2. PENTASA (MESALAZINE) [Concomitant]
  3. ZYRTEC (CETIRIZINE HYDROCHLORIDE) [Concomitant]
  4. SINGULAIR [Concomitant]
  5. FOLIC ACID (FOLIC ACID) [Concomitant]
  6. DEVROM (BISMUTH SUBGALLATE) [Concomitant]
  7. CIPRO (CIPROFLOXACIN HYDROCHLORIDE) [Concomitant]

REACTIONS (1)
  - Metrorrhagia [None]
